FAERS Safety Report 6736629-5 (Version None)
Quarter: 2010Q2

REPORT INFORMATION
  Report Type: 
  Country: None (occurrence: None)
  Receive Date: 20100521
  Receipt Date: 20100513
  Transmission Date: 20101027
  Serious: Yes (Death)
  Sender: FDA-Public Use
  Company Number: US-AMGEN-QUU412249

PATIENT
  Sex: Female

DRUGS (3)
  1. NPLATE [Suspect]
     Indication: THROMBOCYTOPENIA
     Dates: start: 20091027
  2. CORTICOSTEROIDS [Concomitant]
     Dates: start: 20090801
  3. DANAZOL [Concomitant]
     Dates: start: 20091012

REACTIONS (1)
  - DEATH [None]
